FAERS Safety Report 7988702-1 (Version None)
Quarter: 2011Q4

REPORT INFORMATION
  Report Type: 
  Country: None (occurrence: None)
  Receive Date: 20111218
  Receipt Date: 20111206
  Transmission Date: 20120403
  Serious: Yes (Other)
  Sender: FDA-Public Use
  Company Number: US-ELI_LILLY_AND_COMPANY-US201112003003

PATIENT
  Age: 65 Year
  Sex: Male

DRUGS (3)
  1. HYDROMORPHONE HCL [Concomitant]
     Indication: PAIN
     Dosage: UNK
     Dates: start: 20111101
  2. HYDROCODONE BITARTRATE [Concomitant]
     Indication: PAIN
     Dosage: 10 MG, EVERY 4 HRS
     Dates: start: 20111101
  3. CYMBALTA [Suspect]
     Dosage: 20 MG, SINGLE
     Dates: start: 20111101, end: 20111101

REACTIONS (2)
  - HOMICIDAL IDEATION [None]
  - SUICIDAL IDEATION [None]
